FAERS Safety Report 19286956 (Version 1)
Quarter: 2021Q2

REPORT INFORMATION
  Report Type: Spontaneous
  Country: PL (occurrence: PL)
  Receive Date: 20210522
  Receipt Date: 20210522
  Transmission Date: 20210717
  Serious: Yes (Hospitalization, Other)
  Sender: FDA-Public Use
  Company Number: PL-EPICPHARMA-PL-2021EPCLIT00536

PATIENT
  Age: 37 Year
  Sex: Male

DRUGS (1)
  1. AMPHETAMINE SULFATE. [Suspect]
     Active Substance: AMPHETAMINE SULFATE
     Indication: PRODUCT USED FOR UNKNOWN INDICATION
     Route: 048

REACTIONS (10)
  - Toxicity to various agents [Unknown]
  - Aggression [Unknown]
  - Seizure [Unknown]
  - Alanine aminotransferase increased [Unknown]
  - Respiratory alkalosis [Unknown]
  - Aspartate aminotransferase increased [Unknown]
  - Agitation [Unknown]
  - Multiple organ dysfunction syndrome [Unknown]
  - Metabolic acidosis [Unknown]
  - Rhabdomyolysis [Unknown]
